FAERS Safety Report 7621605-0 (Version None)
Quarter: 2011Q3

REPORT INFORMATION
  Report Type: 
  Country: None (occurrence: None)
  Receive Date: 20110719
  Receipt Date: 20110711
  Transmission Date: 20111222
  Serious: Yes (Death, Hospitalization, Other)
  Sender: FDA-Public Use
  Company Number: JP-ABBOTT-11P-087-0707119-00

PATIENT
  Sex: Male

DRUGS (6)
  1. TERIPARATIDE [Concomitant]
     Indication: OSTEOPOROSIS
     Dosage: 20 MCG DAILY
     Route: 058
     Dates: start: 20101224, end: 20110215
  2. MECOBALAMIN [Concomitant]
     Indication: NEUROSIS
     Dosage: 500 MCG DAILY
     Dates: end: 20110414
  3. FOLIC ACID [Concomitant]
     Indication: ANAEMIA
     Dosage: 5 MG DAILY
     Dates: end: 20110414
  4. LEFLUNOMIDE [Concomitant]
     Indication: RHEUMATOID ARTHRITIS
     Dosage: 20 MG DAILY
     Route: 048
     Dates: end: 20110414
  5. FERROUS CITRATE [Concomitant]
     Indication: ANAEMIA
     Dosage: 50 MG DAILY
     Dates: end: 20110414
  6. HUMIRA [Suspect]
     Indication: RHEUMATOID ARTHRITIS
     Route: 058
     Dates: start: 20101210, end: 20110204

REACTIONS (9)
  - PERIPHERAL VASCULAR DISORDER [None]
  - HYPOPHAGIA [None]
  - AORTIC VALVE INCOMPETENCE [None]
  - NECROSIS [None]
  - PYREXIA [None]
  - ANAEMIA [None]
  - ACUTE MYOCARDIAL INFARCTION [None]
  - CONDITION AGGRAVATED [None]
  - CARDIAC FAILURE [None]
